FAERS Safety Report 20725600 (Version 1)
Quarter: 2022Q2

REPORT INFORMATION
  Report Type: Spontaneous
  Country: US (occurrence: None)
  Receive Date: 20220419
  Receipt Date: 20220419
  Transmission Date: 20220721
  Serious: Yes (Other)
  Sender: FDA-Public Use
  Company Number: None

PATIENT
  Sex: Female

DRUGS (1)
  1. ALUMINUM CHLORIDE [Suspect]
     Active Substance: ALUMINUM CHLORIDE

REACTIONS (2)
  - Application site burn [None]
  - Rash [None]
